FAERS Safety Report 22038780 (Version 1)
Quarter: 2023Q1

REPORT INFORMATION
  Report Type: Spontaneous
  Country: US (occurrence: US)
  Receive Date: 20230227
  Receipt Date: 20230227
  Transmission Date: 20230418
  Serious: Yes (Hospitalization)
  Sender: FDA-Public Use
  Company Number: US-SA-SAC20230224001573

PATIENT
  Age: 30 Year
  Sex: Female
  Weight: 49.89 kg

DRUGS (20)
  1. DUPIXENT [Suspect]
     Active Substance: DUPILUMAB
     Indication: Asthma
     Dosage: 300 MG, QOW
     Route: 058
     Dates: end: 202301
  2. OYSCO [Concomitant]
     Dosage: UNK
  3. SYNTHROID [Concomitant]
     Active Substance: LEVOTHYROXINE SODIUM
  4. NADOLOL [Concomitant]
     Active Substance: NADOLOL
  5. CROMOLYN SODIUM [Concomitant]
     Active Substance: CROMOLYN SODIUM
     Route: 048
  6. LORATADINE [Concomitant]
     Active Substance: LORATADINE
  7. VITAMINS [Concomitant]
     Active Substance: VITAMINS
  8. UBRELVY [Concomitant]
     Active Substance: UBROGEPANT
  9. PREDNISONE [Concomitant]
     Active Substance: PREDNISONE
  10. PROVERA [MEDROXYPROGESTERONE] [Concomitant]
  11. XOPENEX [Concomitant]
     Active Substance: LEVALBUTEROL HYDROCHLORIDE
  12. SYMBICORT [Concomitant]
     Active Substance: BUDESONIDE\FORMOTEROL FUMARATE DIHYDRATE
  13. SPIRIVA [Concomitant]
     Active Substance: TIOTROPIUM BROMIDE MONOHYDRATE
  14. CLONAZEPAM [Concomitant]
     Active Substance: CLONAZEPAM
  15. DILANTIN [Concomitant]
     Active Substance: PHENYTOIN
  16. LOVASTATIN [Concomitant]
     Active Substance: LOVASTATIN
  17. ZYRTEC [Concomitant]
     Active Substance: CETIRIZINE HYDROCHLORIDE
  18. CLINDAMYCIN HYDROCHLORIDE [Concomitant]
     Active Substance: CLINDAMYCIN HYDROCHLORIDE
  19. PEPCID [Concomitant]
     Active Substance: FAMOTIDINE
  20. SODIUM CHLORIDE [Concomitant]
     Active Substance: SODIUM CHLORIDE

REACTIONS (1)
  - Gastrointestinal tube insertion [Unknown]

NARRATIVE: CASE EVENT DATE: 20230201
